FAERS Safety Report 6616025 (Version 2)
Quarter: 2020Q3

REPORT INFORMATION
  Report Type: Spontaneous
  Country: PT (occurrence: PT)
  Receive Date: 20080416
  Receipt Date: 20200814
  Transmission Date: 20201103
  Serious: Yes (Other)
  Sender: FDA-Public Use
  Company Number: PT-MERCK-0804USA01731

PATIENT

DRUGS (5)
  1. ZOLEDRONATE [Suspect]
     Active Substance: ZOLEDRONIC ACID
     Indication: PLASMA CELL MYELOMA
     Dosage: 4 MG DURING 15MIN PER MONTH
     Route: 042
     Dates: start: 2002, end: 200509
  2. CYCLOPHOSPHAMIDE. [Suspect]
     Active Substance: CYCLOPHOSPHAMIDE
     Indication: PLASMA CELL MYELOMA
     Dosage: 1 MG, QD, EVERY MONTH
     Route: 042
     Dates: start: 2002
  3. DEXAMETHASONE. [Suspect]
     Active Substance: DEXAMETHASONE
     Indication: PLASMA CELL MYELOMA
     Dosage: 40 MG, DURING 4 DAYS, EVERY MONTH
     Route: 048
     Dates: start: 2002, end: 2005
  4. THALIDOMIDE [Suspect]
     Active Substance: THALIDOMIDE
     Indication: PLASMA CELL MYELOMA
     Dosage: 100 MG, QD, DURING 3 YEARS
     Route: 048
     Dates: start: 2002
  5. ERYTHROPOETIN [Suspect]
     Active Substance: ERYTHROPOIETIN
     Indication: PLASMA CELL MYELOMA
     Dosage: 30000 U, QD, EVERY MONTH
     Route: 058
     Dates: start: 2002

REACTIONS (4)
  - Actinomycosis [Recovering/Resolving]
  - Haemorrhage [Recovering/Resolving]
  - Osteonecrosis of jaw [Recovering/Resolving]
  - Osteomyelitis [Recovering/Resolving]

NARRATIVE: CASE EVENT DATE: 200509
